FAERS Safety Report 5874944-8 (Version None)
Quarter: 2008Q3

REPORT INFORMATION
  Report Type: 
  Country: None (occurrence: None)
  Receive Date: 20080904
  Receipt Date: 20080724
  Transmission Date: 20090109
  Serious: Yes (Other)
  Sender: FDA-Public Use
  Company Number: 2008-00788FE

PATIENT
  Age: 86 Year
  Sex: Female

DRUGS (17)
  1. MINIRIN [Suspect]
     Indication: MICTURITION URGENCY
     Dosage: 10 MCG
     Route: 045
     Dates: start: 20070621, end: 20070702
  2. MINIRIN [Suspect]
     Indication: URINARY INCONTINENCE
     Dosage: 10 MCG
     Route: 045
     Dates: start: 20070621, end: 20070702
  3. ACETAMINOPHEN W/ CODEINE [Concomitant]
  4. CLOMIPRAMINE HYDROCHLORIDE [Concomitant]
  5. DIAZEPAM [Concomitant]
  6. PROPOXYPHENE HCL AND ACETAMINOPHEN [Concomitant]
  7. IRBESARTAN [Concomitant]
  8. COLCHICINE [Concomitant]
  9. CIPROFIBRATE [Concomitant]
  10. RILMENIDINE [Concomitant]
  11. ZOLPIDEM [Concomitant]
  12. ALIMEMAZINE TARTRATE [Concomitant]
  13. PIRACETAM [Concomitant]
  14. FERROUS SULFATE TAB [Concomitant]
  15. ESBERIVEN [Concomitant]
  16. MACROGOL [Concomitant]
  17. PILOCARPINE HYDROCHLORIDE [Concomitant]

REACTIONS (3)
  - CONFUSIONAL STATE [None]
  - HALLUCINATION [None]
  - OFF LABEL USE [None]
